FAERS Safety Report 8027293 (Version 6)
Quarter: 2013Q4

REPORT INFORMATION
  Report Type: Spontaneous
  Country: US (occurrence: US)
  Receive Date: 20110711
  Receipt Date: 20131125
  Transmission Date: 20140711
  Serious: Yes (Hospitalization)
  Sender: FDA-Public Use
  Company Number: US-BIOGENIDEC-2011BI023276

PATIENT
  Age: 41 Year
  Sex: Female

DRUGS (2)
  1. AVONEX [Suspect]
     Indication: MULTIPLE SCLEROSIS
     Route: 030
     Dates: start: 20080201
  2. AVONEX [Suspect]
     Indication: MULTIPLE SCLEROSIS
     Route: 030
     Dates: start: 20120103

REACTIONS (4)
  - Cerebrovascular accident [Recovered/Resolved]
  - Antiphospholipid syndrome [Unknown]
  - Multiple sclerosis relapse [Recovered/Resolved]
  - Drug dose omission [Recovered/Resolved]
